FAERS Safety Report 6376863-X (Version None)
Quarter: 2009Q3

REPORT INFORMATION
  Report Type: 
  Country: None (occurrence: None)
  Receive Date: 20090921
  Receipt Date: 20090902
  Transmission Date: 20100115
  Serious: Yes (Hospitalization, Other)
  Sender: FDA-Public Use
  Company Number: BVT-000307

PATIENT
  Sex: Female

DRUGS (1)
  1. KINERET [Suspect]
     Dosage: (100 MG SUBCUTANEOUS)
     Route: 058
     Dates: start: 20090101

REACTIONS (4)
  - EFFUSION [None]
  - GOUT [None]
  - NODULE [None]
  - PULMONARY OEDEMA [None]
